FAERS Safety Report 8925279 (Version 3)
Quarter: 2013Q1

REPORT INFORMATION
  Report Type: Spontaneous
  Country: US (occurrence: US)
  Receive Date: 20121126
  Receipt Date: 20130308
  Transmission Date: 20140127
  Serious: Yes (Hospitalization)
  Sender: FDA-Public Use
  Company Number: US-BAYER-2012-121136

PATIENT
  Age: 22 Year
  Sex: Female
  Weight: 63.49 kg

DRUGS (16)
  1. YAZ [Suspect]
     Indication: CONTRACEPTION
     Dosage: UNK
     Dates: start: 201008, end: 201009
  2. LOESTRIN FE [Concomitant]
  3. BACTRIM [Concomitant]
  4. LORTAB [Concomitant]
  5. PREDNISONE [Concomitant]
  6. ZYRTEC [Concomitant]
  7. LEXAPRO [Concomitant]
  8. PROPRANOLOL [Concomitant]
  9. WOMEN^S MULTI [Concomitant]
  10. INNOPRAN XL [Concomitant]
     Dosage: 120 MG, UNK
  11. PEPCID [Concomitant]
     Dosage: 20 MG, UNK
     Route: 048
  12. BENADRYL [Concomitant]
     Dosage: 25 MG, UNK
     Route: 042
  13. DECADRON [Concomitant]
     Dosage: 10 MG, UNK
     Route: 042
  14. ALBUTEROL SULFATE [Concomitant]
     Dosage: 2.5
  15. CLARITIN [Concomitant]
  16. IBUPROFEN [Concomitant]

REACTIONS (11)
  - Thrombophlebitis superficial [Recovering/Resolving]
  - Axillary vein thrombosis [Recovered/Resolved]
  - Subclavian vein thrombosis [Recovered/Resolved]
  - Injury [Recovered/Resolved]
  - Pain [None]
  - General physical health deterioration [Recovered/Resolved]
  - Anxiety [None]
  - Emotional distress [None]
  - Pain [Recovered/Resolved]
  - Depression [None]
  - Anxiety [None]
